FAERS Safety Report 17743671 (Version 5)
Quarter: 2021Q1

REPORT INFORMATION
  Report Type: Other
  Country: JP (occurrence: JP)
  Receive Date: 20200505
  Receipt Date: 20210203
  Transmission Date: 20210419
  Serious: Yes (Death, Hospitalization)
  Sender: FDA-Public Use
  Company Number: JP-ROCHE-2593531

PATIENT
  Age: 80 Year
  Sex: Female

DRUGS (20)
  1. PACLITAXEL. [Suspect]
     Active Substance: PACLITAXEL
     Indication: NON-SMALL CELL LUNG CANCER
     Dosage: AMOUNT OF 1 ONCE ADMINISTRATION: 240 (UNIT UNCERTAINTY) AND 1 COURSE AND DOSE ?INTERVAL UNCERTAINTY
     Route: 041
     Dates: start: 20200414
  2. FAMOTIDINE. [Concomitant]
     Active Substance: FAMOTIDINE
     Indication: DIVERTICULUM INTESTINAL
     Dosage: DOSE INTERVAL UNCERTAINTY
     Route: 065
  3. CARBOPLATIN. [Suspect]
     Active Substance: CARBOPLATIN
     Indication: NON-SMALL CELL LUNG CANCER
     Dosage: AMOUNT OF 1 ONCE ADMINISTRATION: 350 (UNIT UNCERTAINTY) AND 1 COURSE AND DOSE ?INTERVAL UNCERTAINTY
     Route: 041
     Dates: start: 20200414
  4. BEVACIZUMAB. [Suspect]
     Active Substance: BEVACIZUMAB
     Indication: NON-SMALL CELL LUNG CANCER
     Dosage: AMOUNT OF 1 ONCE ADMINISTRATION: 510 (UNIT UNCERTAINTY) AND 1 COURSE AND DOSE ?INTERVAL UNCERTAINTY
     Route: 041
     Dates: start: 20200414
  5. BEVACIZUMAB. [Suspect]
     Active Substance: BEVACIZUMAB
     Dosage: FOUR COURSES AND AMOUNTS OF 1 ONCE ADMINISTRATION: 510 (UNIT UNCERTAINTY) AND DOSE INTERVAL UNCERTAI
     Route: 041
     Dates: start: 20200623
  6. TEPRENONE [Concomitant]
     Active Substance: TEPRENONE
     Indication: GASTRIC ULCER
     Dosage: DOSE INTERVAL UNCERTAINTY
     Route: 065
  7. CALONAL [Concomitant]
     Active Substance: ACETAMINOPHEN
     Indication: PAIN
     Route: 065
     Dates: start: 20200417
  8. ATEZOLIZUMAB. [Suspect]
     Active Substance: ATEZOLIZUMAB
     Dosage: TWO COURSES AND AMOUNTS OF 1 ONCE ADMINISTRATION: 1200 (UNIT UNCERTAINTY) AND DOSE INTERVAL UNCERTAI
     Route: 041
     Dates: start: 20200508
  9. ATEZOLIZUMAB. [Suspect]
     Active Substance: ATEZOLIZUMAB
     Dosage: FOUR COURSES AND AMOUNTS OF 1 ONCE ADMINISTRATION: 1200 (UNIT UNCERTAINTY) AND DOSE INTERVAL UNCERTA
     Route: 041
     Dates: start: 20200623
  10. CARBOPLATIN. [Suspect]
     Active Substance: CARBOPLATIN
     Dosage: TWO COURSES AND AMOUNTS OF 1 ONCE ADMINISTRATION: 350 (UNIT UNCERTAINTY) AND DOSE INTERVAL UNCERTAIN
     Route: 041
     Dates: start: 20200508
  11. PACLITAXEL. [Suspect]
     Active Substance: PACLITAXEL
     Dosage: FOUR COURSES AND AMOUNTS OF 1 ONCE ADMINISTRATION: 240 (UNIT UNCERTAINTY) AND DOSE INTERVAL UNCERTAI
     Route: 041
     Dates: start: 20200623
  12. POLAPREZINC [Concomitant]
     Active Substance: POLAPREZINC
     Indication: GASTRIC ULCER
     Dosage: DOSE INTERVAL UNCERTAINTY
     Route: 065
     Dates: start: 20190912
  13. ATEZOLIZUMAB. [Suspect]
     Active Substance: ATEZOLIZUMAB
     Indication: NON-SMALL CELL LUNG CANCER
     Dosage: AMOUNT OF 1 ONCE ADMINISTRATION: 1200 (UNIT UNCERTAINTY) AND 1 COURSE AND DOSE  INTERVAL UNCERTAINTY
     Route: 041
     Dates: start: 20200414
  14. CARBOPLATIN. [Suspect]
     Active Substance: CARBOPLATIN
     Dosage: FOUR COURSES AND AMOUNTS OF 1 ONCE ADMINISTRATION: 350 (UNIT UNCERTAINTY) AND DOSE INTERVAL UNCERTAI
     Route: 041
     Dates: start: 20200623
  15. PACLITAXEL. [Suspect]
     Active Substance: PACLITAXEL
     Dosage: TWO COURSES AND AMOUNTS OF 1 ONCE ADMINISTRATION: 240 (UNIT UNCERTAINTY) AND DOSE INTERVAL UNCERTAIN
     Route: 041
     Dates: start: 20200508
  16. DILTIAZEM HYDROCHLORIDE. [Concomitant]
     Active Substance: DILTIAZEM HYDROCHLORIDE
     Indication: ANGINA PECTORIS
     Route: 065
  17. LOSARTAN POTASSIUM. [Concomitant]
     Active Substance: LOSARTAN POTASSIUM
     Indication: HYPERTENSION
     Route: 065
  18. BEVACIZUMAB. [Suspect]
     Active Substance: BEVACIZUMAB
     Dosage: TWO COURSES AND AMOUNTS OF 1 ONCE ADMINISTRATION: 510 (UNIT UNCERTAINTY) AND DOSE INTERVAL UNCERTAIN
     Route: 041
     Dates: start: 20200508
  19. PRIMPERAN [Concomitant]
     Active Substance: METOCLOPRAMIDE HYDROCHLORIDE
     Indication: NAUSEA
     Route: 065
     Dates: start: 20190813
  20. AMLODIPINE [Concomitant]
     Active Substance: AMLODIPINE BESYLATE
     Indication: GASTRIC ULCER
     Route: 048
     Dates: start: 20200608

REACTIONS (2)
  - Pleurisy [Recovering/Resolving]
  - Febrile neutropenia [Recovering/Resolving]

NARRATIVE: CASE EVENT DATE: 20200423
